FAERS Safety Report 9184054 (Version 1)
Quarter: 2012Q4

REPORT INFORMATION
  Report Type: 
  Country: US (occurrence: US)
  Receive Date: 20121030
  Receipt Date: 20121030
  Transmission Date: 20130627
  Serious: No
  Sender: FDA-Public Use
  Company Number: US-JNJFOC-20121016409

PATIENT
  Sex: Female
  Weight: 40.37 kg

DRUGS (8)
  1. SANDOZ FENTANYL TRANSDERMAL SYSTEM [Suspect]
     Indication: NEUROPATHY PERIPHERAL
     Route: 062
     Dates: start: 201111
  2. DURAGESIC [Suspect]
     Indication: NEUROPATHY PERIPHERAL
     Route: 062
     Dates: start: 201111
  3. TPN [Concomitant]
     Indication: MALABSORPTION
     Route: 042
  4. LEXAPRO [Concomitant]
     Indication: DEPRESSION
     Route: 048
     Dates: end: 201204
  5. LYRICA [Concomitant]
     Indication: BURNING SENSATION
     Route: 048
  6. EFFEXOR [Concomitant]
     Indication: DEPRESSION
     Route: 048
     Dates: start: 201204
  7. LIPIDS [Concomitant]
     Indication: MALABSORPTION
     Route: 042
     Dates: start: 2002
  8. OXYCODONE [Concomitant]
     Indication: PAIN
     Dosage: every 4 hours as needed.
     Route: 048

REACTIONS (1)
  - Wrong technique in drug usage process [Not Recovered/Not Resolved]
